FAERS Safety Report 8113373-3 (Version None)
Quarter: 2012Q1

REPORT INFORMATION
  Report Type: 
  Country: None (occurrence: None)
  Receive Date: 20120203
  Receipt Date: 20120201
  Transmission Date: 20120608
  Serious: Yes (Death, Hospitalization, Other)
  Sender: FDA-Public Use
  Company Number: PHEH2012US002265

PATIENT
  Age: 27 Year
  Sex: Female

DRUGS (1)
  1. TOBI [Suspect]
     Indication: CYSTIC FIBROSIS
     Dosage: 300 MG, BID 28 DAYS ON AND 28 DAYS OFF
     Dates: start: 20111007, end: 20111103

REACTIONS (2)
  - LUNG DISORDER [None]
  - DEATH [None]
